FAERS Safety Report 4655936-3 (Version None)
Quarter: 2005Q2

REPORT INFORMATION
  Report Type: 
  Country: None (occurrence: None)
  Receive Date: 20050509
  Receipt Date: 20050429
  Transmission Date: 20051028
  Serious: Yes (Other)
  Sender: FDA-Public Use
  Company Number: GB-BRISTOL-MYERS SQUIBB COMPANY-12952446

PATIENT
  Sex: Female

DRUGS (5)
  1. REYATAZ [Suspect]
     Route: 048
  2. RITONAVIR [Suspect]
  3. TENOFOVIR [Suspect]
  4. EMTRICITABINE [Suspect]
  5. DOTHIEPIN HYDROCHLORIDE [Suspect]

REACTIONS (2)
  - EFFUSION [None]
  - PREGNANCY [None]
